FAERS Safety Report 17372105 (Version 1)
Quarter: 2020Q1

REPORT INFORMATION
  Report Type: Spontaneous
  Country: US (occurrence: US)
  Receive Date: 20200205
  Receipt Date: 20200205
  Transmission Date: 20200409
  Serious: Yes (Hospitalization)
  Sender: FDA-Public Use
  Company Number: US-MYLANLABS-2020M1012959

PATIENT
  Age: 52 Year
  Sex: Female

DRUGS (3)
  1. MYCOPHENOLATE MOFETIL. [Suspect]
     Active Substance: MYCOPHENOLATE MOFETIL
     Indication: PEMPHIGUS
     Dosage: 2 GRAM, QD
     Route: 065
  2. RITUXIMAB. [Suspect]
     Active Substance: RITUXIMAB
     Dosage: ADMINISTERED FOR 4 WEEKS
     Route: 042
  3. RITUXIMAB. [Suspect]
     Active Substance: RITUXIMAB
     Indication: PEMPHIGUS
     Dosage: ON DAY 0 AND DAY 14 FOR 2 CYCLES
     Route: 042

REACTIONS (4)
  - Encephalocele [Recovered/Resolved]
  - Idiopathic intracranial hypertension [Recovered/Resolved]
  - Cerebral toxoplasmosis [Recovered/Resolved]
  - Cerebrospinal fluid leakage [Recovered/Resolved]
